FAERS Safety Report 25188187 (Version 1)
Quarter: 2025Q2

REPORT INFORMATION
  Report Type: Spontaneous
  Country: SE (occurrence: SE)
  Receive Date: 20250411
  Receipt Date: 20250411
  Transmission Date: 20250717
  Serious: Yes (Other)
  Sender: TEVA
  Company Number: SE-TEVA-VS-3318930

PATIENT
  Sex: Female

DRUGS (1)
  1. OXAZEPAM [Suspect]
     Active Substance: OXAZEPAM
     Indication: Product used for unknown indication
     Dosage: 09 AM IN THE MORNING AND AT 8 PM IN THE EVENING,? BATCH NUMBER: 18267124 OR 26 IN THE END
     Route: 048
     Dates: start: 2024

REACTIONS (10)
  - Oral pain [Not Recovered/Not Resolved]
  - Stress [Not Recovered/Not Resolved]
  - Skin warm [Not Recovered/Not Resolved]
  - Tinnitus [Not Recovered/Not Resolved]
  - Pharyngeal erythema [Unknown]
  - Anxiety [Not Recovered/Not Resolved]
  - Somnolence [Recovered/Resolved]
  - Pain of skin [Recovered/Resolved]
  - Protein total increased [Not Recovered/Not Resolved]
  - Feeling hot [Not Recovered/Not Resolved]

NARRATIVE: CASE EVENT DATE: 20250321
